FAERS Safety Report 4578962-1 (Version None)
Quarter: 2005Q1

REPORT INFORMATION
  Report Type: 
  Country: None (occurrence: None)
  Receive Date: 20050121
  Receipt Date: 20040119
  Transmission Date: 20050727
  Serious: Yes (Other)
  Sender: FDA-Public Use
  Company Number: HQWYE481120JAN04

PATIENT
  Sex: Female

DRUGS (1)
  1. NORPLANT SYSTEM [Suspect]
     Indication: CONTRACEPTION
     Dosage: 6 CAPSULES, SUBCUTANEOUS
     Route: 058

REACTIONS (4)
  - COMPLICATION OF DEVICE REMOVAL [None]
  - DRUG INEFFECTIVE [None]
  - MIGRATION OF IMPLANT [None]
  - UNINTENDED PREGNANCY [None]
